FAERS Safety Report 5235351-4 (Version None)
Quarter: 2007Q1

REPORT INFORMATION
  Report Type: 
  Country: None (occurrence: None)
  Receive Date: 20070212
  Receipt Date: 20070130
  Transmission Date: 20070707
  Serious: Yes (Other)
  Sender: FDA-Public Use
  Company Number: PHBS2006JP19406

PATIENT
  Age: 46 Year
  Sex: Female

DRUGS (2)
  1. LOCHOL [Suspect]
     Indication: HYPERLIPIDAEMIA
     Dosage: 30 MG, UNK
     Route: 048
     Dates: start: 20061102, end: 20061201
  2. ACTOS [Concomitant]
     Dosage: 15 OR 30 MG/DAY, UNK
     Route: 048
     Dates: start: 20060823, end: 20061201

REACTIONS (11)
  - ALANINE AMINOTRANSFERASE INCREASED [None]
  - ASPARTATE AMINOTRANSFERASE INCREASED [None]
  - BLOOD ALKALINE PHOSPHATASE INCREASED [None]
  - BLOOD GLUCOSE INCREASED [None]
  - BLOOD LACTATE DEHYDROGENASE INCREASED [None]
  - CONDITION AGGRAVATED [None]
  - GAMMA-GLUTAMYLTRANSFERASE INCREASED [None]
  - GLUCOSE TOLERANCE IMPAIRED [None]
  - GLYCOSYLATED HAEMOGLOBIN INCREASED [None]
  - HEPATITIS [None]
  - LEUKOCYTE ALKALINE PHOSPHATASE INCREASED [None]
